FAERS Safety Report 12178043 (Version 3)
Quarter: 2016Q3

REPORT INFORMATION
  Report Type: Spontaneous
  Country: US (occurrence: US)
  Receive Date: 20160314
  Receipt Date: 20160804
  Transmission Date: 20161109
  Serious: Yes (Hospitalization)
  Sender: FDA-Public Use
  Company Number: US-CELGENEUS-USA-2016032076

PATIENT
  Age: 70 Year
  Sex: Female
  Weight: 54.48 kg

DRUGS (2)
  1. REVLIMID [Suspect]
     Active Substance: LENALIDOMIDE
     Indication: PLASMA CELL MYELOMA
     Route: 048
     Dates: start: 20150904
  2. REVLIMID [Suspect]
     Active Substance: LENALIDOMIDE
     Route: 048
     Dates: start: 2016

REACTIONS (2)
  - Deep vein thrombosis [Not Recovered/Not Resolved]
  - Thrombosis [Recovered/Resolved]

NARRATIVE: CASE EVENT DATE: 20160211
